FAERS Safety Report 7410257-0 (Version None)
Quarter: 2011Q2

REPORT INFORMATION
  Report Type: 
  Country: None (occurrence: None)
  Receive Date: 20110412
  Receipt Date: 20110331
  Transmission Date: 20111010
  Serious: Yes (Other)
  Sender: FDA-Public Use
  Company Number: PHHY2011US29470

PATIENT
  Sex: Male

DRUGS (8)
  1. RECLAST [Suspect]
     Dosage: 5 MG,
     Route: 042
     Dates: start: 20101207
  2. HYDROCHLOROTHIAZIDE [Concomitant]
     Dosage: 50 MG,
  3. PREDNISONE [Suspect]
  4. CALCIUM [Suspect]
     Dosage: 6-8 /DAY
  5. ACETAMINOPHEN [Suspect]
  6. VITAMIN D [Concomitant]
     Dosage: 50000 IU, EVERY FRIDAY
  7. AMITRIPTYLINE HCL [Concomitant]
     Dosage: 5 MG, 1X DAY
  8. BENAZEPRIL HYDROCHLORIDE [Concomitant]
     Dosage: 20 MG, 1 X DAY

REACTIONS (14)
  - MUSCULOSKELETAL PAIN [None]
  - URINE CALCIUM [None]
  - ARTHROPATHY [None]
  - MOVEMENT DISORDER [None]
  - BLOOD GLUCOSE INCREASED [None]
  - FEELING ABNORMAL [None]
  - INSOMNIA [None]
  - ASTHENIA [None]
  - INFLUENZA LIKE ILLNESS [None]
  - POLYMYALGIA RHEUMATICA [None]
  - ARTHRALGIA [None]
  - PAIN [None]
  - ABDOMINAL DISCOMFORT [None]
  - MALAISE [None]
